FAERS Safety Report 11119400 (Version 1)
Quarter: 2015Q2

REPORT INFORMATION
  Report Type: Spontaneous
  Country: JP (occurrence: JP)
  Receive Date: 20150518
  Receipt Date: 20150518
  Transmission Date: 20150821
  Serious: Yes (Disabling, Other)
  Sender: FDA-Public Use
  Company Number: JP-ACTAVIS-2015-09604

PATIENT
  Age: 56 Year
  Sex: Female

DRUGS (2)
  1. KENACORT [Suspect]
     Active Substance: TRIAMCINOLONE
     Indication: TRIGGER FINGER
     Dosage: 1 ML, SINGLE
     Route: 052
  2. TRIAMCINOLONE ACETONIDE (AMALLC) [Suspect]
     Active Substance: TRIAMCINOLONE ACETONIDE
     Indication: TRIGGER FINGER
     Dosage: 1 ML, SINGLE
     Route: 052

REACTIONS (1)
  - Ligament rupture [Recovered/Resolved]
